FAERS Safety Report 9776482 (Version 2)
Quarter: 2013Q4

REPORT INFORMATION
  Report Type: Spontaneous
  Country: ZA (occurrence: ZA)
  Receive Date: 20131220
  Receipt Date: 20131220
  Transmission Date: 20140711
  Serious: Yes (Hospitalization)
  Sender: FDA-Public Use
  Company Number: ZA-ABBVIE-13P-143-1074420-00

PATIENT
  Sex: Male

DRUGS (1)
  1. HUMIRA [Suspect]
     Indication: RHEUMATOID ARTHRITIS
     Route: 058
     Dates: start: 2007, end: 201311

REACTIONS (7)
  - Arthralgia [Unknown]
  - Rheumatoid arthritis [Unknown]
  - Ligament injury [Unknown]
  - Osteoarthritis [Unknown]
  - Limb injury [Unknown]
  - Infection [Unknown]
  - Malaise [Unknown]
